FAERS Safety Report 7520356-0 (Version None)
Quarter: 2011Q2

REPORT INFORMATION
  Report Type: 
  Country: None (occurrence: None)
  Receive Date: 20110602
  Receipt Date: 20110524
  Transmission Date: 20111010
  Serious: Yes (Other)
  Sender: FDA-Public Use
  Company Number: PHHY2011US44300

PATIENT
  Age: 16 Year
  Sex: Male

DRUGS (6)
  1. ONDANSETRON [Suspect]
  2. ETOPOSIDE [Suspect]
     Dosage: 100 MG/M2, ON D1-5
  3. PROMETHAZINE [Suspect]
     Dosage: 25 MG, Q8H PRN ON DAY 1-5
  4. CISPLATIN [Suspect]
     Dosage: 20 MG/M2, ON DAY 1-5
  5. BLEOMYCIN SULFATE [Suspect]
     Dosage: 30 MG ON DAY 1,5, AND 15
  6. DEXAMETHASONE [Suspect]
     Dosage: 6 MG/DAY ON DAY 1-7

REACTIONS (12)
  - DELUSION [None]
  - ABNORMAL BEHAVIOUR [None]
  - GRANDIOSITY [None]
  - RESTLESSNESS [None]
  - INSOMNIA [None]
  - MENTAL STATUS CHANGES [None]
  - AGITATION [None]
  - NEUTROPENIA [None]
  - HEPATIC ENZYME INCREASED [None]
  - NAUSEA [None]
  - TACHYPHRENIA [None]
  - PSYCHOTIC DISORDER [None]
